FAERS Safety Report 12266050 (Version 5)
Quarter: 2016Q2

REPORT INFORMATION
  Report Type: Report from Study
  Country: AU (occurrence: AU)
  Receive Date: 20160413
  Receipt Date: 20160623
  Transmission Date: 20160815
  Serious: Yes (Death, Life-Threatening, Hospitalization, Disabling, Other)
  Sender: FDA-Public Use
  Company Number: AU-ABBVIE-16P-008-1599281-00

PATIENT
  Age: 71 Year
  Sex: Female
  Weight: 62 kg

DRUGS (16)
  1. PAMIDRONIC ACID [Concomitant]
     Active Substance: PAMIDRONIC ACID
     Indication: HYPERCALCAEMIA
  2. OXYCONTIN [Concomitant]
     Active Substance: OXYCODONE HYDROCHLORIDE
     Indication: BACK PAIN
     Route: 048
     Dates: start: 2009, end: 20151115
  3. CALTRATE [Concomitant]
     Active Substance: CALCIUM CARBONATE
     Indication: PRODUCT USED FOR UNKNOWN INDICATION
     Route: 048
     Dates: start: 2009
  4. OXYCONTIN [Concomitant]
     Active Substance: OXYCODONE HYDROCHLORIDE
     Route: 048
     Dates: start: 20151116
  5. ALLOPURINOL. [Concomitant]
     Active Substance: ALLOPURINOL
     Indication: PROPHYLAXIS
     Route: 048
     Dates: start: 20151024, end: 20151105
  6. VITAMIN B [Concomitant]
     Active Substance: VITAMIN B
     Indication: NEUROPATHY PERIPHERAL
     Route: 048
     Dates: start: 2009
  7. CRAMPEZE NIGHT CRAMPS [Concomitant]
     Indication: MUSCLE SPASMS
     Route: 048
     Dates: start: 2013
  8. DEXAMETHASONE. [Suspect]
     Active Substance: DEXAMETHASONE
     Indication: PLASMA CELL MYELOMA
     Dosage: DAYS 1,2,4,5,8,9,11 AND 12 OF EACH 21 DAY CYCLE
     Route: 048
     Dates: start: 20151027, end: 20160402
  9. BACTRIM [Concomitant]
     Active Substance: SULFAMETHOXAZOLE\TRIMETHOPRIM
     Indication: ANTIFUNGAL PROPHYLAXIS
     Route: 048
     Dates: start: 2012
  10. ENDONE [Concomitant]
     Active Substance: OXYCODONE HYDROCHLORIDE
     Indication: BACK PAIN
     Route: 048
     Dates: start: 2015
  11. OSTELIN [Concomitant]
     Active Substance: ERGOCALCIFEROL
     Indication: PRODUCT USED FOR UNKNOWN INDICATION
     Route: 048
     Dates: start: 2009
  12. PAMIDRONIC ACID [Concomitant]
     Active Substance: PAMIDRONIC ACID
     Indication: PROPHYLAXIS
     Route: 042
     Dates: start: 2015
  13. CENTRUM [Concomitant]
     Active Substance: VITAMINS
     Indication: ROUTINE HEALTH MAINTENANCE
     Route: 048
     Dates: start: 2009
  14. ALLOPURINOL. [Concomitant]
     Active Substance: ALLOPURINOL
     Indication: TUMOUR LYSIS SYNDROME
  15. VENETOCLAX [Suspect]
     Active Substance: VENETOCLAX
     Indication: PLASMA CELL MYELOMA
     Route: 048
     Dates: start: 20151027, end: 20160406
  16. BORTEZOMIB [Suspect]
     Active Substance: BORTEZOMIB
     Indication: PLASMA CELL MYELOMA
     Dosage: DAYS 1, 4, 8 AND 11 OF EACH 21 DAY CYCLE
     Route: 058
     Dates: start: 20151027, end: 20160401

REACTIONS (1)
  - Guillain-Barre syndrome [Fatal]

NARRATIVE: CASE EVENT DATE: 20160405
